FAERS Safety Report 5387611-4 (Version None)
Quarter: 2007Q3

REPORT INFORMATION
  Report Type: 
  Country: None (occurrence: None)
  Receive Date: 20070711
  Receipt Date: 20070711
  Transmission Date: 20080115
  Serious: No
  Sender: FDA-Public Use
  Company Number: None

PATIENT
  Age: 64 Year
  Sex: Male
  Weight: 68.2664 kg

DRUGS (1)
  1. EFAVIRENZ/EMTRICITABINE/TENOFOVI [Suspect]
     Indication: HIV INFECTION
     Dosage: 1 TAB DAILY PO
     Route: 048
     Dates: start: 20060928, end: 20070518

REACTIONS (4)
  - FEELING ABNORMAL [None]
  - HYPERHIDROSIS [None]
  - INSOMNIA [None]
  - NIGHTMARE [None]
